FAERS Safety Report 24001720 (Version 1)
Quarter: 2024Q2

REPORT INFORMATION
  Report Type: Spontaneous
  Country: CN (occurrence: CN)
  Receive Date: 20240621
  Receipt Date: 20240621
  Transmission Date: 20240716
  Serious: Yes (Hospitalization)
  Sender: FDA-Public Use
  Company Number: CN-LUNDBECK-DKLU4000540

PATIENT
  Age: 66 Year
  Sex: Female

DRUGS (4)
  1. ESCITALOPRAM [Suspect]
     Active Substance: ESCITALOPRAM OXALATE
     Indication: Cerebral infarction
     Dosage: 5 003
     Route: 048
     Dates: start: 20240529, end: 20240529
  2. GINKGO [Concomitant]
     Active Substance: GINKGO
     Indication: Cerebral infarction
     Dosage: 5 032
     Route: 048
     Dates: start: 20240529, end: 20240529
  3. ZALEPLON [Concomitant]
     Active Substance: ZALEPLON
     Indication: Cerebral infarction
     Dosage: 1 TABLET PO QN
     Route: 048
     Dates: start: 20240529, end: 20240529
  4. AN NAO [Concomitant]
     Indication: Cerebral infarction
     Dosage: 2 032
     Route: 048
     Dates: start: 20240529, end: 20240529

REACTIONS (4)
  - Decreased appetite [Recovering/Resolving]
  - Product use in unapproved indication [Unknown]
  - Palpitations [Not Recovered/Not Resolved]
  - Insomnia [Recovering/Resolving]

NARRATIVE: CASE EVENT DATE: 20240529
